FAERS Safety Report 18893966 (Version 1)
Quarter: 2021Q1

REPORT INFORMATION
  Report Type: Report from Study
  Country: IT (occurrence: IT)
  Receive Date: 20210215
  Receipt Date: 20210215
  Transmission Date: 20210420
  Serious: Yes (Other)
  Sender: FDA-Public Use
  Company Number: IT-MYLANLABS-2021M1009552

PATIENT
  Age: 40 Year
  Sex: Female

DRUGS (1)
  1. COPEMYLTRI [Suspect]
     Active Substance: GLATIRAMER ACETATE
     Indication: MULTIPLE SCLEROSIS
     Dosage: 40 MILLIGRAM, QOD
     Route: 058
     Dates: start: 20180601, end: 20200316

REACTIONS (7)
  - Dyspnoea [Recovering/Resolving]
  - Coronavirus infection [Recovering/Resolving]
  - Nausea [Recovering/Resolving]
  - Hyperpyrexia [Recovering/Resolving]
  - Vertigo [Recovering/Resolving]
  - Chest discomfort [Recovering/Resolving]
  - Cough [Recovering/Resolving]

NARRATIVE: CASE EVENT DATE: 20200309
